FAERS Safety Report 6048754-5 (Version None)
Quarter: 2009Q1

REPORT INFORMATION
  Report Type: 
  Country: None (occurrence: None)
  Receive Date: 20090123
  Receipt Date: 20090109
  Transmission Date: 20090719
  Serious: Yes (Hospitalization, Other)
  Sender: FDA-Public Use
  Company Number: US-GENENTECH-269823

PATIENT

DRUGS (3)
  1. BEVACIZUMAB [Suspect]
     Indication: ADENOCARCINOMA PANCREAS
     Dosage: 10 MG/KG, DAYS 1+15
     Dates: start: 20050102
  2. GEMCITABINE [Suspect]
     Indication: ADENOCARCINOMA PANCREAS
     Dosage: 1000 MG/M2, DAYS 1+15
     Dates: start: 20050102
  3. CISPLATIN [Suspect]
     Indication: ADENOCARCINOMA PANCREAS
     Dosage: 20 MG/M2, DAYS 1+15
     Dates: start: 20050102

REACTIONS (1)
  - HYPOKALAEMIA [None]
